FAERS Safety Report 5233871-X (Version None)
Quarter: 2007Q1

REPORT INFORMATION
  Report Type: 
  Country: None (occurrence: None)
  Receive Date: 20070208
  Receipt Date: 20070125
  Transmission Date: 20070707
  Serious: Yes (Death)
  Sender: FDA-Public Use
  Company Number: FR-BRISTOL-MYERS SQUIBB COMPANY-13659933

PATIENT
  Age: 50 Year
  Sex: Male

DRUGS (4)
  1. COAPROVEL [Suspect]
     Route: 048
  2. PRAVASTATIN [Suspect]
  3. PLAVIX [Suspect]
     Route: 048
  4. FONZYLANE [Suspect]

REACTIONS (1)
  - DEATH [None]
